FAERS Safety Report 15038533 (Version 2)
Quarter: 2022Q1

REPORT INFORMATION
  Report Type: Spontaneous
  Country: IT (occurrence: IT)
  Receive Date: 20180620
  Receipt Date: 20220222
  Transmission Date: 20220424
  Serious: Yes (Other)
  Sender: FDA-Public Use
  Company Number: IT-REGULATORY HEALTH AUTHORITY ITALY-187100

PATIENT
  Age: 21 Year
  Sex: Female

DRUGS (11)
  1. ARIPIPRAZOLE [Interacting]
     Active Substance: ARIPIPRAZOLE
     Indication: Tourette^s disorder
     Dosage: 7.5 MG, QD
     Route: 065
  2. ARIPIPRAZOLE [Interacting]
     Active Substance: ARIPIPRAZOLE
     Dosage: UNK, QD
     Route: 065
  3. ARIPIPRAZOLE [Interacting]
     Active Substance: ARIPIPRAZOLE
     Dosage: 2.5 MG, QD
     Route: 065
  4. ARIPIPRAZOLE [Interacting]
     Active Substance: ARIPIPRAZOLE
     Dosage: UNK, INCREASING DOSAGE UP TO 7.5 MG DAILY
     Route: 065
  5. FLUOXETINE [Interacting]
     Active Substance: FLUOXETINE HYDROCHLORIDE
     Indication: Tourette^s disorder
     Dosage: 20 MG, QD
     Route: 065
  6. FLUOXETINE [Interacting]
     Active Substance: FLUOXETINE HYDROCHLORIDE
     Indication: Obsessive-compulsive symptom
     Dosage: UNK
     Route: 065
  7. FLUOXETINE [Interacting]
     Active Substance: FLUOXETINE HYDROCHLORIDE
     Indication: Self-destructive behaviour
     Dosage: UNK
     Route: 065
  8. FLUOXETINE [Interacting]
     Active Substance: FLUOXETINE HYDROCHLORIDE
     Dosage: UNK, INCREASING DOSAGE UP TO 20 MG DAILY
     Route: 065
  9. PAROXETINE HYDROCHLORIDE [Interacting]
     Active Substance: PAROXETINE HYDROCHLORIDE
     Indication: Tourette^s disorder
     Dosage: 10 MG, QD
     Route: 065
  10. SERTRALINE HYDROCHLORIDE [Interacting]
     Active Substance: SERTRALINE HYDROCHLORIDE
     Indication: Tourette^s disorder
     Dosage: 50 MG, QD
     Route: 065
  11. TIAPRIDE HYDROCHLORIDE [Suspect]
     Active Substance: TIAPRIDE HYDROCHLORIDE
     Indication: Tourette^s disorder
     Dosage: 100 MG, QD
     Route: 065

REACTIONS (12)
  - Slow response to stimuli [Recovered/Resolved]
  - Drug level increased [Recovered/Resolved]
  - Joint hyperextension [Recovered/Resolved]
  - Decreased activity [Recovered/Resolved]
  - Posture abnormal [Recovered/Resolved]
  - Gaze palsy [Recovered/Resolved]
  - Eye movement disorder [Recovered/Resolved]
  - Confusional state [Recovering/Resolving]
  - Oculogyric crisis [Recovered/Resolved]
  - Somnolence [Recovered/Resolved]
  - Drug interaction [Unknown]
  - Product use in unapproved indication [Unknown]
